FAERS Safety Report 10575976 (Version 2)
Quarter: 2015Q2

REPORT INFORMATION
  Report Type: Spontaneous
  Country: US (occurrence: US)
  Receive Date: 20141111
  Receipt Date: 20150429
  Transmission Date: 20150821
  Serious: Yes (Death, Other)
  Sender: FDA-Public Use
  Company Number: US-PFIZER INC-2014306033

PATIENT
  Sex: Male

DRUGS (1)
  1. NITROGLYCERIN. [Suspect]
     Active Substance: NITROGLYCERIN
     Dosage: UNK

REACTIONS (3)
  - Dyspnoea [Unknown]
  - Condition aggravated [Unknown]
  - Death [Fatal]

NARRATIVE: CASE EVENT DATE: 20150103
